FAERS Safety Report 16365834 (Version 1)
Quarter: 2019Q2

REPORT INFORMATION
  Report Type: Spontaneous
  Country: US (occurrence: US)
  Receive Date: 20190422
  Receipt Date: 20190422
  Transmission Date: 20190711
  Serious: Yes (Life-Threatening, Hospitalization)
  Sender: FDA-Public Use
  Company Number: None

PATIENT
  Age: 65 Year
  Sex: Male
  Weight: 92.99 kg

DRUGS (8)
  1. LASIX 40MG [Concomitant]
  2. LISINOPRIL. [Concomitant]
     Active Substance: LISINOPRIL
  3. POTASSIUM CLR [Concomitant]
  4. ELIQUIS [Concomitant]
     Active Substance: APIXABAN
  5. CARVIDOL 25 MG [Concomitant]
  6. ATIRVASTIN 40MG [Concomitant]
  7. AMIODARONE 100 MG ZYDUS PHAMACUTIAL [Concomitant]
     Active Substance: AMIODARONE
  8. ENTRESTO [Suspect]
     Active Substance: SACUBITRIL\VALSARTAN
     Indication: CARDIAC FAILURE
     Dosage: ?          OTHER STRENGTH:49/51 MG;QUANTITY:2 PILLS;?
     Route: 048
     Dates: start: 20181212, end: 20190115

REACTIONS (4)
  - Feeling abnormal [None]
  - Arrhythmia [None]
  - Gait inability [None]
  - Atrial fibrillation [None]

NARRATIVE: CASE EVENT DATE: 20181212
